FAERS Safety Report 8406355-5 (Version None)
Quarter: 2012Q2

REPORT INFORMATION
  Report Type: 
  Country: None (occurrence: None)
  Receive Date: 20120604
  Receipt Date: 20120601
  Transmission Date: 20120825
  Serious: Yes (Death)
  Sender: FDA-Public Use
  Company Number: PHHY2012AU041179

PATIENT
  Sex: Male

DRUGS (4)
  1. ZOLEDRONOC ACID [Suspect]
     Dosage: 5 MG, UNK
     Route: 042
     Dates: start: 20110513, end: 20110513
  2. HYOSCINE HBR HYT [Concomitant]
     Dosage: 300 UG, TID
     Route: 058
  3. ZOLEDRONOC ACID [Suspect]
     Indication: OSTEOPOROSIS
     Dosage: 5 MG, UNK
     Route: 042
     Dates: start: 20100427
  4. MORPHINE [Concomitant]
     Dosage: 10 MG, TID
     Dates: start: 20110816

REACTIONS (3)
  - DEMENTIA WITH LEWY BODIES [None]
  - ARTERIOSCLEROSIS [None]
  - APNOEA [None]
